FAERS Safety Report 5123333-2 (Version None)
Quarter: 2006Q4

REPORT INFORMATION
  Report Type: 
  Country: None (occurrence: None)
  Receive Date: 20061005
  Receipt Date: 20060922
  Transmission Date: 20070319
  Serious: Yes (Hospitalization)
  Sender: FDA-Public Use
  Company Number: HQWYE058222SEP06

PATIENT
  Age: 62 Year
  Sex: Female

DRUGS (16)
  1. PANTOPRAZOLE SODIUM [Suspect]
     Dosage: 1 DOSAGE FORM 1X PER 1 DAY
     Route: 048
     Dates: start: 20050701
  2. ARIMIDEX [Suspect]
     Indication: BREAST CANCER
     Dosage: 1 DOSAGE FORM 1X PER 1 DAY
     Route: 048
     Dates: start: 20050701
  3. KETOPROFEN [Suspect]
     Dosage: 150 MG
     Route: 048
     Dates: start: 20051101, end: 20051101
  4. BREXINE                   (PIROXICAM, ) [Suspect]
     Dosage: 20 MG
     Route: 048
     Dates: start: 20051101, end: 20051101
  5. NEXEN                (NIMESULIDE, ) [Suspect]
     Dosage: ^DF^
     Route: 048
     Dates: start: 20051101, end: 20051101
  6. FENOFIBRATE [Concomitant]
  7. TAMOXIFEN CITRATE [Concomitant]
  8. LEVOTHYROXINE SODIUM [Concomitant]
  9. DAFALGAN                   (PARACETAMOL) [Concomitant]
  10. SPASFON           (PHLOROGLUCINOL/TRIMETHYLPHLOROGLUCINOL) [Concomitant]
  11. TIORFAN          (ACETORPHAN) [Concomitant]
  12. ERCEFURYL                     (NIFUROXAZIDE) [Concomitant]
  13. DICETEL                   (PINAVERIUM BROMIDE) [Concomitant]
  14. ABUFENE                 (BETA-ALANINE) [Concomitant]
  15. LOPERAMIDE [Concomitant]
  16. LOPERAMIDE [Concomitant]

REACTIONS (5)
  - ARTHRALGIA [None]
  - COLITIS COLLAGENOUS [None]
  - GENITAL DISCHARGE [None]
  - HOT FLUSH [None]
  - VENOUS INSUFFICIENCY [None]
